APPROVED DRUG PRODUCT: BUTALBITAL AND ACETAMINOPHEN
Active Ingredient: ACETAMINOPHEN; BUTALBITAL
Strength: 325MG;50MG
Dosage Form/Route: TABLET;ORAL
Application: A214291 | Product #001 | TE Code: AA
Applicant: QUAGEN PHARMACEUTICALS LLC
Approved: Jan 18, 2024 | RLD: No | RS: No | Type: RX